FAERS Safety Report 14365361 (Version 1)
Quarter: 2018Q1

REPORT INFORMATION
  Report Type: Spontaneous
  Country: NL (occurrence: NL)
  Receive Date: 20180108
  Receipt Date: 20180108
  Transmission Date: 20180509
  Serious: Yes (Other)
  Sender: FDA-Public Use
  Company Number: NL-IMPAX LABORATORIES, INC-2017-IPXL-03860

PATIENT
  Age: 60 Year
  Sex: Male

DRUGS (1)
  1. CABERGOLINE. [Suspect]
     Active Substance: CABERGOLINE
     Indication: PITUITARY CANCER METASTATIC
     Dosage: UNK
     Route: 065

REACTIONS (2)
  - Neoplasm progression [Recovered/Resolved]
  - Drug resistance [Unknown]
